FAERS Safety Report 4528591-0 (Version None)
Quarter: 2004Q4

REPORT INFORMATION
  Report Type: 
  Country: None (occurrence: None)
  Receive Date: 20041216
  Receipt Date: 20041130
  Transmission Date: 20050328
  Serious: Yes (Other)
  Sender: FDA-Public Use
  Company Number: PHBS2004JP16257

PATIENT
  Age: 77 Year
  Sex: Male

DRUGS (5)
  1. GLEEVEC [Suspect]
     Indication: ACUTE LYMPHOCYTIC LEUKAEMIA
     Dates: start: 20020308, end: 20030826
  2. GLEEVEC [Suspect]
     Dosage: 100 MG/D
     Dates: start: 20030827
  3. ADRIAMYCINE + VINCRISTINE [Concomitant]
     Dates: start: 20020301, end: 20020501
  4. PREDNISOLONE [Concomitant]
     Dates: start: 20020301, end: 20020501
  5. IMMUNOCELL THERAPY [Concomitant]

REACTIONS (6)
  - DIARRHOEA [None]
  - FACE OEDEMA [None]
  - FATIGUE [None]
  - HYPOAESTHESIA [None]
  - LARYNGEAL OEDEMA [None]
  - OEDEMA PERIPHERAL [None]
